FAERS Safety Report 8828770 (Version 1)
Quarter: 2012Q4

REPORT INFORMATION
  Report Type: 
  Country: US (occurrence: US)
  Receive Date: 20121008
  Receipt Date: 20121008
  Transmission Date: 20130627
  Serious: No
  Sender: FDA-Public Use
  Company Number: US-BAYER-2012-097487

PATIENT
  Age: 82 Year
  Sex: Female

DRUGS (3)
  1. AVELOX [Suspect]
     Indication: MYCOBACTERIUM AVIUM COMPLEX INFECTION
     Dosage: 400 mg, QD
     Route: 048
     Dates: start: 2012
  2. PENICILLIN [Suspect]
  3. BIAXIN [Suspect]

REACTIONS (1)
  - Muscular weakness [Not Recovered/Not Resolved]
